FAERS Safety Report 6935894-9 (Version None)
Quarter: 2010Q3

REPORT INFORMATION
  Report Type: 
  Country: None (occurrence: None)
  Receive Date: 20100823
  Receipt Date: 20100810
  Transmission Date: 20110219
  Serious: Yes (Hospitalization)
  Sender: FDA-Public Use
  Company Number: CA-JNJFOC-20100801868

PATIENT
  Sex: Female
  Weight: 54.3 kg

DRUGS (4)
  1. REMICADE [Suspect]
     Indication: CROHN'S DISEASE
     Route: 042
  2. ENTOCORT EC [Concomitant]
  3. CIPRO [Concomitant]
  4. FLAGYL [Concomitant]

REACTIONS (4)
  - BEDRIDDEN [None]
  - MIGRAINE [None]
  - POUCHITIS [None]
  - PYREXIA [None]
